FAERS Safety Report 6788647-9 (Version None)
Quarter: 2010Q2

REPORT INFORMATION
  Report Type: 
  Country: None (occurrence: None)
  Receive Date: 20100623
  Receipt Date: 20080418
  Transmission Date: 20101027
  Serious: No
  Sender: FDA-Public Use
  Company Number: US-PFIZER INC-2008034596

PATIENT
  Sex: Male
  Weight: 75.9 kg

DRUGS (2)
  1. PROCARDIA [Suspect]
     Indication: HYPERTENSION
     Dates: start: 20070401
  2. FELODIPINE [Concomitant]

REACTIONS (1)
  - HEPATIC STEATOSIS [None]
